FAERS Safety Report 20470765 (Version 3)
Quarter: 2022Q1

REPORT INFORMATION
  Report Type: Spontaneous
  Country: BR (occurrence: BR)
  Receive Date: 20220214
  Receipt Date: 20220314
  Transmission Date: 20220423
  Serious: Yes (Hospitalization, Other)
  Sender: FDA-Public Use
  Company Number: BR-GLAXOSMITHKLINE-BR2020AMR213772

PATIENT
  Sex: Female
  Weight: 60 kg

DRUGS (8)
  1. TRELEGY ELLIPTA [Suspect]
     Active Substance: FLUTICASONE FUROATE\UMECLIDINIUM BROMIDE\VILANTEROL TRIFENATATE
     Indication: Asthma
     Dosage: UNK
  2. SERETIDE [Suspect]
     Active Substance: FLUTICASONE PROPIONATE\SALMETEROL XINAFOATE
     Indication: Asthma
     Dosage: 50/250 MCG
  3. SERETIDE [Suspect]
     Active Substance: FLUTICASONE PROPIONATE\SALMETEROL XINAFOATE
  4. SERETIDE [Suspect]
     Active Substance: FLUTICASONE PROPIONATE\SALMETEROL XINAFOATE
     Indication: Asthma
     Dosage: 50/250 MCG
     Dates: start: 20220221
  5. ALBUTEROL [Suspect]
     Active Substance: ALBUTEROL
     Indication: Product used for unknown indication
     Dosage: UNK
  6. NYSTATIN [Suspect]
     Active Substance: NYSTATIN
     Indication: Candida infection
     Dosage: UNK
  7. PANTOPRAZOLE [Suspect]
     Active Substance: PANTOPRAZOLE
     Indication: Candida infection
     Dosage: UNK
  8. DOMPERIDONE [Suspect]
     Active Substance: DOMPERIDONE
     Indication: Candida infection
     Dosage: UNK

REACTIONS (19)
  - Fungal oesophagitis [Unknown]
  - Asthmatic crisis [Unknown]
  - Candida infection [Unknown]
  - Tongue discolouration [Unknown]
  - Asthenia [Unknown]
  - Dyspnoea [Unknown]
  - Weight decreased [Recovered/Resolved]
  - Eating disorder [Recovered/Resolved]
  - Oesophagitis [Recovered/Resolved]
  - Bronchitis [Unknown]
  - Disease recurrence [Unknown]
  - Decreased immune responsiveness [Unknown]
  - Dyspnoea [Unknown]
  - Oesophageal pain [Unknown]
  - Product use in unapproved indication [Unknown]
  - Product prescribing issue [Unknown]
  - Product use issue [Unknown]
  - Drug ineffective [Unknown]
  - Product complaint [Unknown]
